FAERS Safety Report 4735181-3 (Version None)
Quarter: 2005Q3

REPORT INFORMATION
  Report Type: 
  Country: None (occurrence: None)
  Receive Date: 20050804
  Receipt Date: 20050725
  Transmission Date: 20060218
  Serious: Yes (Hospitalization, Other)
  Sender: FDA-Public Use
  Company Number: 2005-07-1709

PATIENT
  Age: 51 Year
  Sex: Male
  Weight: 65.318 kg

DRUGS (2)
  1. TEMODAR [Suspect]
     Indication: GLIOBLASTOMA MULTIFORME
     Dosage: 120 MG QD ORAL
     Route: 048
     Dates: start: 20050620, end: 20050705
  2. RADIATION THERAPY NO DOSE FORM [Suspect]
     Indication: GLIOBLASTOMA MULTIFORME
     Dosage: UNKNOWN X-RAY THERAPY
     Dates: start: 20050620

REACTIONS (2)
  - PNEUMONIA [None]
  - SEPTIC EMBOLUS [None]
